FAERS Safety Report 18233677 (Version 5)
Quarter: 2020Q4

REPORT INFORMATION
  Report Type: Report from Study
  Country: VN (occurrence: VN)
  Receive Date: 20200904
  Receipt Date: 20201013
  Transmission Date: 20210113
  Serious: Yes (Hospitalization)
  Sender: FDA-Public Use
  Company Number: VN-SHIRE-VN202028423

PATIENT

DRUGS (18)
  1. SYAFEN [Concomitant]
     Indication: INFLAMMATION
  2. DOMUVAR [Concomitant]
     Indication: DYSBIOSIS
  3. NEXIUM I.V. [Concomitant]
     Active Substance: ESOMEPRAZOLE SODIUM
     Indication: GASTRIC PH INCREASED
  4. PULMICORT TURBUHALER [Concomitant]
     Active Substance: BUDESONIDE
     Indication: INFLAMMATION
  5. TOBRADEX [Concomitant]
     Active Substance: DEXAMETHASONE\TOBRAMYCIN
     Indication: INFLAMMATION
  6. SOTSTOP [Concomitant]
     Indication: PYREXIA
  7. EUMOVATE [Concomitant]
     Active Substance: CLOBETASONE BUTYRATE
     Indication: INFLAMMATION
  8. GLUCOSE [Concomitant]
     Active Substance: DEXTROSE
     Indication: LIVER DISORDER
     Route: 065
  9. METHYLPREDNISOLON [METHYLPREDNISOLONE] [Concomitant]
     Active Substance: METHYLPREDNISOLONE
     Indication: IMMUNOSUPPRESSION
  10. ZYVOX [Concomitant]
     Active Substance: LINEZOLID
     Indication: INFECTION PROPHYLAXIS
  11. IDURSULFASE [Suspect]
     Active Substance: IDURSULFASE
     Indication: MUCOPOLYSACCHARIDOSIS II
     Dosage: 0.5 MG/KG/DAY, 1X/WEEK
     Route: 042
     Dates: start: 20170731
  12. VANCOMYCIN [Concomitant]
     Active Substance: VANCOMYCIN
     Indication: INFECTION
     Route: 065
  13. METHYLENE BLUE. [Concomitant]
     Active Substance: METHYLENE BLUE
     Indication: INFLAMMATION
  14. SOLU-MEDROL [Concomitant]
     Active Substance: METHYLPREDNISOLONE SODIUM SUCCINATE
     Indication: IMMUNOSUPPRESSION
  15. KLACID [CLARITHROMYCIN] [Concomitant]
     Active Substance: CLARITHROMYCIN
     Indication: INFECTION PROPHYLAXIS
  16. DIMEDROL [Concomitant]
     Active Substance: DIPHENHYDRAMINE
     Indication: HISTAMINE ABNORMAL
  17. FUCIDIN H [FUSIDIC ACID;HYDROCORTISONE ACETATE] [Concomitant]
     Indication: INFLAMMATION
     Route: 065
  18. MERONEM [Concomitant]
     Active Substance: MEROPENEM
     Indication: INFECTION
     Route: 065

REACTIONS (1)
  - Systemic lupus erythematosus [Recovering/Resolving]

NARRATIVE: CASE EVENT DATE: 20200803
